FAERS Safety Report 10897771 (Version 3)
Quarter: 2015Q2

REPORT INFORMATION
  Report Type: Spontaneous
  Country: US (occurrence: US)
  Receive Date: 20150309
  Receipt Date: 20150604
  Transmission Date: 20150821
  Serious: Yes (Hospitalization, Other)
  Sender: FDA-Public Use
  Company Number: US-009507513-1503USA004043

PATIENT
  Sex: Male
  Weight: 102.49 kg

DRUGS (2)
  1. JANUMET [Suspect]
     Active Substance: METFORMIN HYDROCHLORIDE\SITAGLIPTIN PHOSPHATE
     Indication: TYPE 2 DIABETES MELLITUS
     Dosage: 100 MG, QD
     Route: 048
     Dates: start: 20120820, end: 201304
  2. JANUMET XR [Suspect]
     Active Substance: METFORMIN HYDROCHLORIDE\SITAGLIPTIN PHOSPHATE
     Indication: TYPE 2 DIABETES MELLITUS
     Dosage: 50/1000 MG
     Route: 048
     Dates: start: 201303

REACTIONS (18)
  - Thyroid cancer metastatic [Unknown]
  - Radical neck dissection [Unknown]
  - Inappropriate schedule of drug administration [Unknown]
  - Tonsillectomy [Unknown]
  - Coronary arterial stent insertion [Unknown]
  - Hypertension [Unknown]
  - Psoriasis [Unknown]
  - Post procedural hypothyroidism [Unknown]
  - Radioactive iodine therapy [Unknown]
  - Blood glucose increased [Unknown]
  - Weight decreased [Unknown]
  - Metastases to lymph nodes [Unknown]
  - Thyroidectomy [Unknown]
  - Insulin-requiring type 2 diabetes mellitus [Unknown]
  - Hypocalcaemia [Not Recovered/Not Resolved]
  - Myocardial infarction [Unknown]
  - Paranasal sinus hypersecretion [Recovered/Resolved]
  - Infection [Recovered/Resolved]

NARRATIVE: CASE EVENT DATE: 201208
